FAERS Safety Report 19441034 (Version 1)
Quarter: 2021Q2

REPORT INFORMATION
  Report Type: Spontaneous
  Country: US (occurrence: US)
  Receive Date: 20210621
  Receipt Date: 20210621
  Transmission Date: 20210717
  Serious: Yes (Hospitalization, Other)
  Sender: FDA-Public Use
  Company Number: US-APOTEX-2021AP014373

PATIENT
  Age: 56 Year
  Sex: Female

DRUGS (4)
  1. GEMCITABINE. [Suspect]
     Active Substance: GEMCITABINE
     Indication: ADENOCARCINOMA PANCREAS
     Dosage: 1000 MILLIGRAM/SQ. METER (GIVEN ON DAY 1,8 AND 15)
     Route: 065
     Dates: start: 201901
  2. PACLITAXEL. [Suspect]
     Active Substance: PACLITAXEL
  3. GEMCITABINE. [Suspect]
     Active Substance: GEMCITABINE
     Indication: ADENOCARCINOMA PANCREAS
     Dosage: UNK
     Route: 065
     Dates: start: 201901
  4. ABRAXANE [Concomitant]
     Active Substance: PACLITAXEL
     Indication: ADENOCARCINOMA PANCREAS
     Dosage: 125 MILLIGRAM/SQ. METER (GIVEN ON DAY 1,8 AND 15)
     Route: 065
     Dates: start: 201901

REACTIONS (2)
  - Necrotising myositis [Recovered/Resolved]
  - Recall phenomenon [Recovered/Resolved]

NARRATIVE: CASE EVENT DATE: 2019
